FAERS Safety Report 12250841 (Version 2)
Quarter: 2017Q1

REPORT INFORMATION
  Report Type: Report from Study
  Country: US (occurrence: US)
  Receive Date: 20160408
  Receipt Date: 20170106
  Transmission Date: 20170428
  Serious: Yes (Hospitalization, Other)
  Sender: FDA-Public Use
  Company Number: US-009507513-1604USA005887

PATIENT
  Age: 18 Year
  Sex: Male
  Weight: 106 kg

DRUGS (23)
  1. DOXORUBICIN HYDROCHLORIDE. [Suspect]
     Active Substance: DOXORUBICIN HYDROCHLORIDE
     Indication: ANAPLASTIC LARGE CELL LYMPHOMA T- AND NULL-CELL TYPES
     Dosage: 25 MG/M2 IV OVER 1-15 MIN ON DAYS 4 AND 5, COURSE B
     Route: 042
     Dates: start: 20151002, end: 20151003
  2. DOXORUBICIN HYDROCHLORIDE. [Suspect]
     Active Substance: DOXORUBICIN HYDROCHLORIDE
     Dosage: UNK
     Route: 042
  3. SCOPOLAMINE [Concomitant]
     Active Substance: SCOPOLAMINE
     Dosage: UNK
  4. DEXAMETHASONE. [Suspect]
     Active Substance: DEXAMETHASONE
     Dosage: 5 MG/M2, COURSE A: CYCLE 1, 3 AND 5 (CYCLE =21DAYS), BID ON DAYS 1-5
     Route: 048
     Dates: start: 201509, end: 201510
  5. METHOTREXATE. [Suspect]
     Active Substance: METHOTREXATE
     Indication: ANAPLASTIC LARGE CELL LYMPHOMA T- AND NULL-CELL TYPES
     Dosage: DOSAGE REGIMEN: 7.5-12 MG , ROUTE INTRATHECAL
     Route: 037
     Dates: start: 20150908, end: 20150908
  6. CYCLOPHOSPHAMIDE. [Suspect]
     Active Substance: CYCLOPHOSPHAMIDE
     Indication: ANAPLASTIC LARGE CELL LYMPHOMA T- AND NULL-CELL TYPES
     Dosage: 200 MG/M2 IV OVER 15-30 MINUTES ON DAYS 1 AND 2, PROPHASE
     Route: 042
     Dates: start: 20150908
  7. CYCLOPHOSPHAMIDE. [Suspect]
     Active Substance: CYCLOPHOSPHAMIDE
     Dosage: 200 MG/M2 IV OVER 15-30 MINUTES ON DAYS 1-5, COURSE B
     Route: 042
     Dates: start: 20151003
  8. VP-16 [Suspect]
     Active Substance: ETOPOSIDE
     Indication: ANAPLASTIC LARGE CELL LYMPHOMA T- AND NULL-CELL TYPES
     Dosage: ON DAYS 4 AND 5
     Route: 042
     Dates: start: 20151023, end: 20151024
  9. METHOTREXATE. [Suspect]
     Active Substance: METHOTREXATE
     Dosage: 3000 MG/M2 IV OVER 3 HOURS ON DAY 1, COURSE A
     Route: 042
     Dates: start: 201509, end: 201510
  10. METHOTREXATE. [Suspect]
     Active Substance: METHOTREXATE
     Dosage: 3000 MG/M2 IV OVER 3 HOURS ON DAY 1, COURSE B
     Route: 042
     Dates: start: 20151020, end: 20151020
  11. DIPHENHYDRAMINE. [Concomitant]
     Active Substance: DIPHENHYDRAMINE
     Dosage: UNK
  12. ONDANSETRON [Concomitant]
     Active Substance: ONDANSETRON
     Dosage: UNK
  13. SULFAMETHOXAZOLE (+) TRIMETHOPRIM [Concomitant]
     Active Substance: SULFAMETHOXAZOLE\TRIMETHOPRIM
     Dosage: UNK
  14. HYDROCORTISONE. [Suspect]
     Active Substance: HYDROCORTISONE
     Indication: ANAPLASTIC LARGE CELL LYMPHOMA T- AND NULL-CELL TYPES
     Dosage: 7.5-12 MG ON DAY 1 (AGE BASED DOSING)
     Route: 037
     Dates: start: 20150903, end: 20150903
  15. IFOSFAMIDE. [Suspect]
     Active Substance: IFOSFAMIDE
     Indication: ANAPLASTIC LARGE CELL LYMPHOMA T- AND NULL-CELL TYPES
     Dosage: ON DAYS 1-5
     Route: 042
     Dates: start: 20151020, end: 20151024
  16. CYTARABINE. [Suspect]
     Active Substance: CYTARABINE
     Indication: ANAPLASTIC LARGE CELL LYMPHOMA T- AND NULL-CELL TYPES
     Dosage: 15-24 MG, DAY 1 PROPHASE
     Route: 037
     Dates: start: 20150908, end: 20150908
  17. CRIZOTINIB [Suspect]
     Active Substance: CRIZOTINIB
     Indication: ANAPLASTIC LARGE CELL LYMPHOMA T- AND NULL-CELL TYPES
     Dosage: 165 MG/M2, BID ON DAYS 1-21
     Route: 048
     Dates: start: 201509, end: 201510
  18. CRIZOTINIB [Suspect]
     Active Substance: CRIZOTINIB
     Dosage: 165 MG/M2 (COURSE B, CYCLE= 21 DAYS): BID
     Route: 048
     Dates: start: 20151020, end: 20151028
  19. CYTARABINE. [Suspect]
     Active Substance: CYTARABINE
     Dosage: UNK UNK, CYCLICAL
     Route: 042
     Dates: start: 20151023, end: 20151025
  20. LORAZEPAM. [Concomitant]
     Active Substance: LORAZEPAM
     Dosage: UNK
  21. DEXAMETHASONE. [Suspect]
     Active Substance: DEXAMETHASONE
     Indication: ANAPLASTIC LARGE CELL LYMPHOMA T- AND NULL-CELL TYPES
     Dosage: 5 MG/M2, PROPHASE (CYCLE 5 DAYS) QD ON DAYS 1-2 AND ON DAYS 3-5
     Route: 048
     Dates: start: 20150908
  22. DEXAMETHASONE. [Suspect]
     Active Substance: DEXAMETHASONE
     Dosage: 5 MG/M2, COURSE B: CYCLE 2, 4 AND 6 (CYCLE =21DAYS), BID ON DAYS 1-5
     Route: 048
     Dates: start: 20151020, end: 20151024
  23. METHOTREXATE. [Suspect]
     Active Substance: METHOTREXATE
     Dosage: UNK
     Route: 042

REACTIONS (1)
  - Pulmonary embolism [Recovered/Resolved]

NARRATIVE: CASE EVENT DATE: 20151028
